FAERS Safety Report 14616339 (Version 3)
Quarter: 2018Q2

REPORT INFORMATION
  Report Type: Spontaneous
  Country: US (occurrence: US)
  Receive Date: 20180309
  Receipt Date: 20180419
  Transmission Date: 20180711
  Serious: No
  Sender: FDA-Public Use
  Company Number: US-PFIZER INC-2018097325

PATIENT
  Sex: Female

DRUGS (4)
  1. ASA [Concomitant]
     Active Substance: ASPIRIN
     Dosage: 81 MG, DAILY
  2. ADVIL [Suspect]
     Active Substance: IBUPROFEN
     Indication: ARTHRITIS
     Dosage: UNK
     Dates: start: 2018, end: 20180304
  3. ADVIL [Suspect]
     Active Substance: IBUPROFEN
     Dosage: 800 MG, 1X/DAY
     Dates: start: 201801
  4. ADVIL [Suspect]
     Active Substance: IBUPROFEN
     Dosage: UNK, UNK (3 DAYS FRI, SAT AND SUN)

REACTIONS (1)
  - Drug effect decreased [Recovered/Resolved]

NARRATIVE: CASE EVENT DATE: 201801
